FAERS Safety Report 19780521 (Version 1)
Quarter: 2021Q3

REPORT INFORMATION
  Report Type: Report from Study
  Country: US (occurrence: US)
  Receive Date: 20210902
  Receipt Date: 20210902
  Transmission Date: 20211014
  Serious: Yes (Other)
  Sender: FDA-Public Use
  Company Number: US-BAYER-2021-204152

PATIENT
  Age: 79 Year
  Sex: Female

DRUGS (4)
  1. ESCITALOPRAM [Interacting]
     Active Substance: ESCITALOPRAM OXALATE
  2. APIXABAN [Interacting]
     Active Substance: APIXABAN
     Dosage: 2.5 MG, BID
  3. MEGESTROL [Interacting]
     Active Substance: MEGESTROL
  4. ASPIRIN. [Suspect]
     Active Substance: ASPIRIN

REACTIONS (2)
  - Labelled drug-drug interaction medication error [None]
  - Epistaxis [None]
